FAERS Safety Report 9119735 (Version 1)
Quarter: 2013Q1

REPORT INFORMATION
  Report Type: Spontaneous
  Country: DK (occurrence: None)
  Receive Date: 20130130
  Receipt Date: 20130130
  Transmission Date: 20140127
  Serious: Yes (Hospitalization, Disabling, Other)
  Sender: FDA-Public Use
  Company Number: 2013MA000708

PATIENT
  Age: 66 Year
  Sex: Female

DRUGS (1)
  1. METOCLOPRAMIDE ORAL SOLUTION USP, EQ. 5 MG BASE/S ML (ALPHARMA) (METOCLOPRAMIDE) [Suspect]
     Indication: DYSPEPSIA
     Route: 048
     Dates: start: 201208, end: 201209

REACTIONS (7)
  - Mental disorder [None]
  - Anxiety [None]
  - Psychotic disorder [None]
  - Decreased activity [None]
  - Asthenia [None]
  - Eating disorder [None]
  - Communication disorder [None]
